FAERS Safety Report 23106415 (Version 3)
Quarter: 2023Q4

REPORT INFORMATION
  Report Type: Spontaneous
  Country: JP (occurrence: JP)
  Receive Date: 20231025
  Receipt Date: 20231130
  Transmission Date: 20240110
  Serious: Yes (Other)
  Sender: FDA-Public Use
  Company Number: JP-002147023-NVSJ2023JP015285

PATIENT
  Age: 62 Year
  Sex: Male

DRUGS (1)
  1. ENTRESTO [Suspect]
     Active Substance: SACUBITRIL\VALSARTAN
     Indication: Cardiac failure chronic
     Dosage: UNK
     Route: 048

REACTIONS (2)
  - Cardiac infection [Recovering/Resolving]
  - Cardiac valve disease [Recovering/Resolving]

NARRATIVE: CASE EVENT DATE: 20231020
